FAERS Safety Report 9449268 (Version 1)
Quarter: 2013Q3

REPORT INFORMATION
  Report Type: Spontaneous
  Country: NO (occurrence: NO)
  Receive Date: 20130808
  Receipt Date: 20130808
  Transmission Date: 20140515
  Serious: Yes (Other)
  Sender: FDA-Public Use
  Company Number: NO-GLAXOSMITHKLINE-B0913685A

PATIENT
  Age: 74 Year
  Sex: Male

DRUGS (1)
  1. DUODART [Suspect]
     Indication: BENIGN PROSTATIC HYPERPLASIA
     Dosage: 1CAP PER DAY
     Route: 065

REACTIONS (1)
  - Polymyalgia rheumatica [Unknown]
